FAERS Safety Report 19192662 (Version 2)
Quarter: 2021Q4

REPORT INFORMATION
  Report Type: Report from Study
  Country: US (occurrence: US)
  Receive Date: 20210428
  Receipt Date: 20211005
  Transmission Date: 20220304
  Serious: Yes (Other)
  Sender: FDA-Public Use
  Company Number: US-EXELIXIS-CABO-21039678

PATIENT
  Age: 67 Year
  Sex: Male
  Weight: 60 kg

DRUGS (10)
  1. CABOMETYX [Suspect]
     Active Substance: CABOZANTINIB S-MALATE
     Indication: Hepatocellular carcinoma
     Dosage: 60 MG, QD
     Route: 048
     Dates: start: 20210402
  2. CABOMETYX [Suspect]
     Active Substance: CABOZANTINIB S-MALATE
     Dosage: 40 MG, QD
     Route: 048
     Dates: start: 20210624
  3. PRILOSEC [Concomitant]
     Active Substance: OMEPRAZOLE MAGNESIUM
  4. ALDACTONE [Concomitant]
     Active Substance: SPIRONOLACTONE
  5. B1 [Concomitant]
  6. ZOFRAN [Concomitant]
     Active Substance: ONDANSETRON HYDROCHLORIDE
  7. MEGESTROL [Concomitant]
     Active Substance: MEGESTROL
  8. LASIX [Concomitant]
     Active Substance: FUROSEMIDE
  9. FERROUS SULFATE [Concomitant]
     Active Substance: FERROUS SULFATE
  10. XIFAXAN [Concomitant]
     Active Substance: RIFAXIMIN

REACTIONS (3)
  - Illness [Unknown]
  - Dizziness [Unknown]
  - Malignant neoplasm progression [Unknown]

NARRATIVE: CASE EVENT DATE: 20210401
